FAERS Safety Report 8820590 (Version 2)
Quarter: 2012Q4

REPORT INFORMATION
  Report Type: 
  Country: SE (occurrence: SE)
  Receive Date: 20121002
  Receipt Date: 20121102
  Transmission Date: 20130627
  Serious: Yes (Hospitalization, Other)
  Sender: FDA-Public Use
  Company Number: SE-JNJFOC-20120911272

PATIENT
  Age: 65 Year
  Sex: Male

DRUGS (6)
  1. REMICADE [Suspect]
     Indication: RHEUMATOID ARTHRITIS
     Route: 042
     Dates: start: 20070710, end: 20120308
  2. NSAID [Concomitant]
     Route: 065
     Dates: start: 20110811
  3. NSAID [Concomitant]
     Route: 065
     Dates: start: 20050912, end: 20070320
  4. METHOTREXATE [Concomitant]
     Route: 065
     Dates: start: 20050912, end: 20120703
  5. SALAZOPYRIN [Concomitant]
     Route: 065
     Dates: start: 20070320, end: 20070710
  6. PREDNISOLONE [Concomitant]
     Dosage: 5mg/15mg
     Route: 065
     Dates: start: 20070320

REACTIONS (1)
  - Squamous cell carcinoma [Unknown]
